FAERS Safety Report 9917717 (Version 1)
Quarter: 2014Q1

REPORT INFORMATION
  Report Type: Spontaneous
  Country: US (occurrence: US)
  Receive Date: 20140221
  Receipt Date: 20140221
  Transmission Date: 20141002
  Serious: Yes (Other)
  Sender: FDA-Public Use
  Company Number: US-BMSGILMSD-2014-0094738

PATIENT
  Sex: Male

DRUGS (1)
  1. ATRIPLA [Suspect]
     Indication: ACQUIRED IMMUNODEFICIENCY SYNDROME
     Dosage: 1100 MG, UNK
     Route: 065

REACTIONS (3)
  - Suicidal ideation [Recovered/Resolved]
  - Dizziness [Recovered/Resolved]
  - Euphoric mood [Recovered/Resolved]
